FAERS Safety Report 13280996 (Version 3)
Quarter: 2017Q1

REPORT INFORMATION
  Report Type: Spontaneous
  Country: ES (occurrence: ES)
  Receive Date: 20170301
  Receipt Date: 20170324
  Transmission Date: 20170428
  Serious: Yes (Other)
  Sender: FDA-Public Use
  Company Number: ES-AMGEN-ESPSP2017002437

PATIENT
  Age: 69 Year
  Sex: Female

DRUGS (6)
  1. ENBREL [Suspect]
     Active Substance: ETANERCEPT
     Indication: RHEUMATOID ARTHRITIS
     Dosage: 50 MG, WEEKLY (THURSDAYS)
     Route: 058
     Dates: start: 20161122
  2. TURMERIC [Concomitant]
     Active Substance: TURMERIC
     Indication: RHEUMATOID ARTHRITIS
     Dosage: 1 DF, DAILY
  3. PARACETAMOL [Concomitant]
     Active Substance: ACETAMINOPHEN
     Indication: PAIN
     Dosage: UNK UNK, AS NEEDED
  4. MICARDIS PLUS [Concomitant]
     Active Substance: HYDROCHLOROTHIAZIDE\TELMISARTAN
     Indication: HYPERTENSION
     Dosage: 1 DF, DAILY
  5. IBUPROFEN. [Concomitant]
     Active Substance: IBUPROFEN
     Indication: PAIN
     Dosage: UNK UNK, AS NEEDED
  6. OMEPRAZOLE. [Concomitant]
     Active Substance: OMEPRAZOLE
     Indication: PROPHYLAXIS
     Dosage: 1 DF, DAILY

REACTIONS (16)
  - Erythema [Not Recovered/Not Resolved]
  - Diarrhoea [Recovering/Resolving]
  - Injection site pain [Recovered/Resolved]
  - Inflammation [Not Recovered/Not Resolved]
  - Sinusitis [Unknown]
  - Discomfort [Unknown]
  - Injection site erythema [Recovered/Resolved]
  - Condition aggravated [Not Recovered/Not Resolved]
  - Drug ineffective [Not Recovered/Not Resolved]
  - Myalgia [Not Recovered/Not Resolved]
  - Swelling face [Not Recovered/Not Resolved]
  - Facial paralysis [Recovered/Resolved]
  - Ear pain [Not Recovered/Not Resolved]
  - Feeling hot [Unknown]
  - Blood pressure decreased [Recovered/Resolved]
  - Dizziness [Recovered/Resolved]

NARRATIVE: CASE EVENT DATE: 201611
